FAERS Safety Report 9544075 (Version 1)
Quarter: 2013Q3

REPORT INFORMATION
  Report Type: Spontaneous
  Country: US (occurrence: US)
  Receive Date: 20130923
  Receipt Date: 20130923
  Transmission Date: 20140515
  Serious: No
  Sender: FDA-Public Use
  Company Number: US-ASTRAZENECA-2013SE66697

PATIENT
  Age: 67 Year
  Sex: Female

DRUGS (3)
  1. ZESTRIL [Suspect]
     Route: 048
  2. UNKNOWN BP MEDICATIONS [Suspect]
     Route: 065
  3. DIOVAN HCT [Concomitant]

REACTIONS (6)
  - Insomnia [Unknown]
  - Blood pressure inadequately controlled [Unknown]
  - Pruritus [Unknown]
  - Cough [Unknown]
  - Rash [Unknown]
  - Drug ineffective [Unknown]
